FAERS Safety Report 4480413-2 (Version None)
Quarter: 2004Q4

REPORT INFORMATION
  Report Type: 
  Country: None (occurrence: None)
  Receive Date: 20041018
  Receipt Date: 20041011
  Transmission Date: 20050328
  Serious: No
  Sender: FDA-Public Use
  Company Number: 2004UW21195

PATIENT
  Age: 54 Year
  Sex: Female
  Weight: 67.131 kg

DRUGS (5)
  1. IRESSA [Suspect]
     Indication: NON-SMALL CELL LUNG CANCER
     Dosage: 250 MG PO
     Route: 048
     Dates: start: 20040928
  2. TOPROL-XL [Concomitant]
  3. DECADRON [Concomitant]
  4. DILANTIN [Concomitant]
  5. K-DUR 10 [Concomitant]

REACTIONS (2)
  - BLOOD SODIUM DECREASED [None]
  - PITUITARY TUMOUR [None]
